FAERS Safety Report 20685523 (Version 1)
Quarter: 2022Q2

REPORT INFORMATION
  Report Type: Spontaneous
  Country: US (occurrence: None)
  Receive Date: 20220406
  Receipt Date: 20220406
  Transmission Date: 20220721
  Serious: Yes (Life-Threatening, Hospitalization, Disabling)
  Sender: FDA-Public Use
  Company Number: None

PATIENT
  Age: 64 Year
  Sex: Female
  Weight: 66.6 kg

DRUGS (10)
  1. XELJANZ [Suspect]
     Active Substance: TOFACITINIB CITRATE
     Indication: Rheumatoid arthritis
     Dosage: OTHER QUANTITY : 1 TABLET(S)?OTHER FREQUENCY : 1/2 TAB EVERY OTHE?
     Route: 048
     Dates: start: 20211222, end: 20220212
  2. METOPROLOL SUCCINATE [Concomitant]
  3. PRASUGREL [Concomitant]
     Active Substance: PRASUGREL
  4. FOSAMAX [Concomitant]
     Active Substance: ALENDRONATE SODIUM
  5. SPIRONOLACTONE [Concomitant]
     Active Substance: SPIRONOLACTONE
  6. LEVOTHYROXINE [Concomitant]
     Active Substance: LEVOTHYROXINE
  7. ALPRAZOLAM [Concomitant]
     Active Substance: ALPRAZOLAM
  8. FLOMAX [Concomitant]
     Active Substance: TAMSULOSIN HYDROCHLORIDE
  9. NITROGLYCERIN [Concomitant]
     Active Substance: NITROGLYCERIN
  10. EXTRA STRENGH TYLENOL [Concomitant]

REACTIONS (5)
  - Myocardial infarction [None]
  - Coronary artery stenosis [None]
  - Coronary artery thrombosis [None]
  - Blood cholesterol increased [None]
  - Hypertension [None]

NARRATIVE: CASE EVENT DATE: 20220215
